FAERS Safety Report 12504396 (Version 1)
Quarter: 2016Q2

REPORT INFORMATION
  Report Type: Spontaneous
  Country: BG (occurrence: BG)
  Receive Date: 20160628
  Receipt Date: 20160628
  Transmission Date: 20160815
  Serious: Yes (Hospitalization)
  Sender: FDA-Public Use
  Company Number: BG-TEVA-671233ISR

PATIENT
  Age: 37 Year
  Sex: Female

DRUGS (2)
  1. OLANZAPINE. [Suspect]
     Active Substance: OLANZAPINE
     Indication: SUICIDE ATTEMPT
     Dosage: 0.3 G
     Route: 048
  2. DAPSONE. [Suspect]
     Active Substance: DAPSONE
     Indication: SUICIDE ATTEMPT
     Route: 048

REACTIONS (5)
  - Hepatitis toxic [Recovered/Resolved]
  - Poisoning [Recovered/Resolved]
  - Methaemoglobinaemia [Recovered/Resolved]
  - Intentional overdose [Recovered/Resolved]
  - Coma [Recovered/Resolved]
